FAERS Safety Report 19169194 (Version 1)
Quarter: 2021Q2

REPORT INFORMATION
  Report Type: Report from Study
  Country: US (occurrence: US)
  Receive Date: 20210422
  Receipt Date: 20210422
  Transmission Date: 20210717
  Serious: Yes (Other)
  Sender: FDA-Public Use
  Company Number: US-MYLANLABS-2021M1024014

PATIENT
  Age: 57 Year
  Sex: Male

DRUGS (4)
  1. INDOMETACIN [Suspect]
     Active Substance: INDOMETHACIN
     Indication: EYE PAIN
     Dosage: 25 MILLIGRAM
     Route: 065
  2. TOPIRAMATE. [Suspect]
     Active Substance: TOPIRAMATE
     Indication: EYE PAIN
     Dosage: 100 MILLIGRAM
     Route: 065
  3. PREGABALIN. [Suspect]
     Active Substance: PREGABALIN
     Indication: EYE PAIN
     Dosage: 150 MILLIGRAM, BID
     Route: 048
  4. GABAPENTIN. [Suspect]
     Active Substance: GABAPENTIN
     Indication: EYE PAIN
     Dosage: 300 MILLIGRAM, TID THREE TIMES DAILY
     Route: 048

REACTIONS (2)
  - Drug ineffective [Unknown]
  - Off label use [Unknown]
